FAERS Safety Report 18735839 (Version 13)
Quarter: 2022Q2

REPORT INFORMATION
  Report Type: Spontaneous
  Country: PL (occurrence: PL)
  Receive Date: 20210113
  Receipt Date: 20220404
  Transmission Date: 20220721
  Serious: Yes (Hospitalization, Other)
  Sender: FDA-Public Use
  Company Number: NVSC2021PL005308

PATIENT
  Age: 68 Year
  Sex: Male

DRUGS (26)
  1. QUETIAPINE [Interacting]
     Active Substance: QUETIAPINE
     Indication: Insomnia
     Dosage: 25 MG, QD (INITIAL DOSE) AT NIGHT (FILM-COATED TABLET)
     Route: 065
  2. QUETIAPINE [Interacting]
     Active Substance: QUETIAPINE
     Dosage: 50 MG, QD (INCREASED) AT NIGHT, 50 MG AT BEDTIME) (FILM-COATED TABLET)
     Route: 065
  3. QUETIAPINE [Interacting]
     Active Substance: QUETIAPINE
     Dosage: 50 MG AT BEDTIME
     Route: 065
  4. QUETIAPINE [Interacting]
     Active Substance: QUETIAPINE
     Dosage: 25 MG AT BEDTIME
     Route: 065
  5. ATORVASTATIN CALCIUM [Interacting]
     Active Substance: ATORVASTATIN CALCIUM
     Indication: Atrial fibrillation
     Dosage: 40 MG (AFTER A STROKE)
     Route: 048
  6. ATORVASTATIN CALCIUM [Interacting]
     Active Substance: ATORVASTATIN CALCIUM
     Indication: Cerebrovascular accident
  7. METOPROLOL [Interacting]
     Active Substance: METOPROLOL
     Indication: Atrial fibrillation
     Dosage: 100 MG
     Route: 048
  8. METOPROLOL [Interacting]
     Active Substance: METOPROLOL
     Indication: Cerebrovascular accident
  9. CIPROFLOXACIN HYDROCHLORIDE [Interacting]
     Active Substance: CIPROFLOXACIN HYDROCHLORIDE
     Indication: Penile infection
     Dosage: 1000 MG, QD (500 MILLIGRAM, 2X/DAY (BID)
     Route: 048
  10. CIPROFLOXACIN HYDROCHLORIDE [Interacting]
     Active Substance: CIPROFLOXACIN HYDROCHLORIDE
     Indication: Antibiotic prophylaxis
  11. CIPROFLOXACIN HYDROCHLORIDE [Interacting]
     Active Substance: CIPROFLOXACIN HYDROCHLORIDE
     Indication: Infectious disease carrier
  12. CIPROFLOXACIN HYDROCHLORIDE [Interacting]
     Active Substance: CIPROFLOXACIN HYDROCHLORIDE
     Indication: Pruritus genital
  13. XARELTO [Interacting]
     Active Substance: RIVAROXABAN
     Indication: Atrial fibrillation
     Dosage: 20 MG (AFTER A STROKE)
     Route: 048
  14. XARELTO [Interacting]
     Active Substance: RIVAROXABAN
     Indication: Cerebrovascular accident
  15. FUROSEMIDE [Interacting]
     Active Substance: FUROSEMIDE
     Indication: Cardiovascular disorder
     Dosage: 40 MG
     Route: 048
  16. FUROSEMIDE [Interacting]
     Active Substance: FUROSEMIDE
     Indication: Atrial fibrillation
  17. FUROSEMIDE [Interacting]
     Active Substance: FUROSEMIDE
     Indication: Cerebrovascular accident
  18. DIAZEPAM [Interacting]
     Active Substance: DIAZEPAM
     Indication: Insomnia
     Dosage: 10 MG, QD (10 MG HALF HOUR BEFORE BEDTIME)
     Route: 065
  19. CETIRIZINE [Interacting]
     Active Substance: CETIRIZINE HYDROCHLORIDE
     Indication: Pruritus
     Dosage: 10 MG, QD
     Route: 065
  20. CETIRIZINE [Interacting]
     Active Substance: CETIRIZINE HYDROCHLORIDE
     Indication: Pruritus genital
  21. FLUCONAZOLE [Interacting]
     Active Substance: FLUCONAZOLE
     Indication: Penile infection
     Dosage: 100 MG, Q12H IN COMBINATION WITH CIPROFLOXACIN 2X500 MG ORALLY
     Route: 048
  22. FLUCONAZOLE [Interacting]
     Active Substance: FLUCONAZOLE
     Indication: Antibiotic prophylaxis
     Dosage: 200 MG, QD (100 MG, BID)
     Route: 048
  23. FLUCONAZOLE [Interacting]
     Active Substance: FLUCONAZOLE
     Indication: Infectious disease carrier
     Dosage: 100 MG
     Route: 065
  24. FLUCONAZOLE [Interacting]
     Active Substance: FLUCONAZOLE
     Indication: Pruritus genital
  25. TRAZODONE [Interacting]
     Active Substance: TRAZODONE HYDROCHLORIDE
     Indication: Somnolence
     Dosage: 50 MG, QD (50 MG THREE HOURS BEFORE BEDTIME)
     Route: 065
  26. TRAZODONE [Interacting]
     Active Substance: TRAZODONE HYDROCHLORIDE
     Indication: Insomnia

REACTIONS (16)
  - Pruritus genital [Recovered/Resolved]
  - Genital haemorrhage [Unknown]
  - Penile haemorrhage [Recovered/Resolved]
  - Penis injury [Recovered/Resolved]
  - Pruritus [Recovered/Resolved]
  - Drug interaction [Recovered/Resolved]
  - Drug ineffective [Unknown]
  - Insomnia [Unknown]
  - Condition aggravated [Recovered/Resolved]
  - Somnolence [Recovered/Resolved]
  - Fall [Recovered/Resolved]
  - Haemorrhage [Recovered/Resolved]
  - Drug level increased [Unknown]
  - Contraindicated product administered [Unknown]
  - Off label use [Unknown]
  - Product use in unapproved indication [Unknown]
